FAERS Safety Report 4543495-5 (Version None)
Quarter: 2004Q4

REPORT INFORMATION
  Report Type: 
  Country: None (occurrence: None)
  Receive Date: 20041229
  Receipt Date: 20041229
  Transmission Date: 20050328
  Serious: Yes (Life-Threatening, Hospitalization)
  Sender: FDA-Public Use
  Company Number: None

PATIENT
  Age: 23 Year
  Sex: Female
  Weight: 70.3075 kg

DRUGS (1)
  1. CEPHALEXIN [Suspect]
     Dosage: 1 CAPSULE   2 TIMES ORAL
     Route: 048

REACTIONS (1)
  - DRUG HYPERSENSITIVITY [None]
